FAERS Safety Report 25740161 (Version 1)
Quarter: 2025Q3

REPORT INFORMATION
  Report Type: Spontaneous
  Country: US (occurrence: None)
  Receive Date: 20250828
  Receipt Date: 20250828
  Transmission Date: 20251020
  Serious: No
  Sender: FDA-CTU
  Company Number: None

PATIENT
  Age: 47 Year
  Sex: Female
  Weight: 94.95 kg

DRUGS (18)
  1. ZEPBOUND [Suspect]
     Active Substance: TIRZEPATIDE
     Indication: Hypertension
     Dosage: OTHER QUANTITY : 1 INJECTION(S);?OTHER FREQUENCY : ONCE PER WEEK;?
     Route: 058
     Dates: start: 20250823, end: 20250828
  2. ZEPBOUND [Suspect]
     Active Substance: TIRZEPATIDE
     Indication: Obstructive sleep apnoea syndrome
  3. ZEPBOUND [Suspect]
     Active Substance: TIRZEPATIDE
     Indication: Obstructive sleep apnoea syndrome
  4. ZEPBOUND [Suspect]
     Active Substance: TIRZEPATIDE
     Indication: Obstructive sleep apnoea syndrome
  5. ZEPBOUND [Suspect]
     Active Substance: TIRZEPATIDE
     Indication: Obstructive sleep apnoea syndrome
  6. Tyrosint [Concomitant]
  7. DEXILANT [Concomitant]
     Active Substance: DEXLANSOPRAZOLE
  8. GABAPENTIN [Concomitant]
     Active Substance: GABAPENTIN
  9. CARBAMAZEPINE [Concomitant]
     Active Substance: CARBAMAZEPINE
  10. CLONAZEPAM [Concomitant]
     Active Substance: CLONAZEPAM
  11. HYDROCHLOROTHIAZIDE [Concomitant]
     Active Substance: HYDROCHLOROTHIAZIDE
  12. rosuvatatin [Concomitant]
  13. LOSARTAN [Concomitant]
     Active Substance: LOSARTAN
  14. DEVICE [Concomitant]
     Active Substance: DEVICE
  15. MECLIZINE [Concomitant]
     Active Substance: MECLIZINE HYDROCHLORIDE
  16. melxoicam [Concomitant]
  17. ALBUTEROL [Concomitant]
     Active Substance: ALBUTEROL
  18. EPIPEN [Concomitant]
     Active Substance: EPINEPHRINE

REACTIONS (9)
  - Nausea [None]
  - Insomnia [None]
  - Pain [None]
  - Fatigue [None]
  - Asthenia [None]
  - Yawning [None]
  - Somnolence [None]
  - Impaired work ability [None]
  - Activities of daily living decreased [None]

NARRATIVE: CASE EVENT DATE: 20250823
